FAERS Safety Report 6914680-X (Version None)
Quarter: 2010Q3

REPORT INFORMATION
  Report Type: 
  Country: None (occurrence: None)
  Receive Date: 20100809
  Receipt Date: 20100803
  Transmission Date: 20110219
  Serious: Yes (Other)
  Sender: FDA-Public Use
  Company Number: BR-SANOFI-AVENTIS-2010SA043236

PATIENT
  Age: 71 Year
  Sex: Female
  Weight: 85 kg

DRUGS (11)
  1. LANTUS [Suspect]
     Route: 058
     Dates: start: 20060101
  2. OPTIPEN [Suspect]
  3. MEMANTINE HCL [Concomitant]
     Route: 048
     Dates: start: 20090601
  4. GLIMEPIRIDE [Concomitant]
     Route: 048
  5. METFORMIN HCL [Concomitant]
     Route: 048
  6. LOSARTAN POSTASSIUM [Concomitant]
     Indication: BLOOD PRESSURE ABNORMAL
     Route: 048
  7. SOTALOL HCL [Concomitant]
     Dosage: HALF AT BREAKFAST AND DINNER
  8. SIMVASTATIN [Concomitant]
     Route: 048
  9. LEVOTHYROXINE [Concomitant]
     Indication: HYPOTHYROIDISM
     Route: 048
  10. CILOSTAZOL [Concomitant]
     Route: 048
  11. CARBAMAZEPINE [Concomitant]
     Route: 048

REACTIONS (1)
  - DEMENTIA ALZHEIMER'S TYPE [None]
